FAERS Safety Report 20942365 (Version 1)
Quarter: 2022Q2

REPORT INFORMATION
  Report Type: Spontaneous
  Country: US (occurrence: US)
  Receive Date: 20220610
  Receipt Date: 20220610
  Transmission Date: 20220721
  Serious: Yes (Hospitalization, Other)
  Sender: FDA-Public Use
  Company Number: US-AMGEN-USASP2022095089

PATIENT

DRUGS (7)
  1. INFLIXIMAB [Suspect]
     Active Substance: INFLIXIMAB
     Indication: Multisystem inflammatory syndrome in children
     Dosage: UNK
     Route: 065
  2. HUMAN IMMUNOGLOBULIN G [Concomitant]
     Active Substance: HUMAN IMMUNOGLOBULIN G
     Route: 042
  3. HYDROXYCHLOROQUINE [Concomitant]
     Active Substance: HYDROXYCHLOROQUINE
  4. TOCILIZUMAB [Concomitant]
     Active Substance: TOCILIZUMAB
  5. REMDESIVIR [Concomitant]
     Active Substance: REMDESIVIR
  6. ANAKINRA [Concomitant]
     Active Substance: ANAKINRA
  7. HUMAN PLASMA [Concomitant]
     Active Substance: HUMAN PLASMA

REACTIONS (14)
  - Disturbance in attention [Unknown]
  - Sleep disorder [Unknown]
  - Snoring [Unknown]
  - Mental disorder [Unknown]
  - Neurological symptom [Unknown]
  - Mood altered [Unknown]
  - Behaviour disorder [Unknown]
  - Apathy [Unknown]
  - Somnolence [Unknown]
  - Middle insomnia [Unknown]
  - Initial insomnia [Unknown]
  - Seizure [Unknown]
  - Headache [Unknown]
  - Off label use [Unknown]
